FAERS Safety Report 16425999 (Version 2)
Quarter: 2019Q3

REPORT INFORMATION
  Report Type: Report from Study
  Country: None (occurrence: NL)
  Receive Date: 20190613
  Receipt Date: 20190725
  Transmission Date: 20191004
  Serious: Yes (Death)
  Sender: FDA-Public Use
  Company Number: NL-ABBVIE-19S-114-2819299-00

PATIENT
  Sex: Female

DRUGS (1)
  1. DUODOPA [Suspect]
     Active Substance: CARBIDOPA\LEVODOPA
     Indication: PARKINSON^S DISEASE
     Dosage: STRENGTH (CMP): 20 MG/ML 5 MG/ML
     Route: 050
     Dates: start: 20170825

REACTIONS (3)
  - Intestinal obstruction [Fatal]
  - Asthenia [Fatal]
  - Parkinson^s disease [Fatal]
